FAERS Safety Report 7584024-1 (Version None)
Quarter: 2011Q2

REPORT INFORMATION
  Report Type: 
  Country: None (occurrence: None)
  Receive Date: 20110623
  Receipt Date: 20110613
  Transmission Date: 20111010
  Serious: Yes (Other)
  Sender: FDA-Public Use
  Company Number: 953521

PATIENT
  Age: 70 Year
  Sex: Female

DRUGS (2)
  1. SODIUM CHLORIDE [Suspect]
     Indication: HAEMODYNAMIC INSTABILITY
     Dosage: 100-150 ML PER HOUR, INTRAVENOUS (NOT OTHERWISE SPECIFIED)
     Route: 042
  2. NIMODIPINE [Suspect]

REACTIONS (3)
  - POSTERIOR REVERSIBLE ENCEPHALOPATHY SYNDROME [None]
  - VASOGENIC CEREBRAL OEDEMA [None]
  - GRAND MAL CONVULSION [None]
